FAERS Safety Report 11482421 (Version 1)
Quarter: 2015Q3

REPORT INFORMATION
  Report Type: Spontaneous
  Country: US (occurrence: None)
  Receive Date: 20150908
  Receipt Date: 20150908
  Transmission Date: 20151125
  Serious: Yes (Disabling)
  Sender: FDA-Public Use
  Company Number: None

PATIENT
  Age: 29 Year
  Sex: Female
  Weight: 79.38 kg

DRUGS (8)
  1. NASONEX [Suspect]
     Active Substance: MOMETASONE FUROATE
     Indication: RHINITIS ALLERGIC
     Dosage: 2 SPRAYS PER NOSTRIL TWICE DAILY
     Route: 055
     Dates: start: 20141115, end: 20141215
  2. NASONEX [Suspect]
     Active Substance: MOMETASONE FUROATE
     Indication: SEASONAL ALLERGY
     Dosage: 2 SPRAYS PER NOSTRIL TWICE DAILY
     Route: 055
     Dates: start: 20141115, end: 20141215
  3. AZELASTINE\FLUTICASONE [Suspect]
     Active Substance: AZELASTINE HYDROCHLORIDE\FLUTICASONE PROPIONATE
     Indication: SEASONAL ALLERGY
     Dosage: 3-4 DAYS, 2 SPRAYS PER NOSTRIL TWICE DAILY
     Route: 055
     Dates: start: 201501
  4. ESSENTIAL OILS. [Concomitant]
     Active Substance: ESSENTIAL OILS
  5. AZELASTINE\FLUTICASONE [Suspect]
     Active Substance: AZELASTINE HYDROCHLORIDE\FLUTICASONE PROPIONATE
     Indication: RHINITIS ALLERGIC
     Dosage: 3-4 DAYS, 2 SPRAYS PER NOSTRIL TWICE DAILY
     Route: 055
     Dates: start: 201501
  6. ORTHO-TRI-CYCLEN-LO [Concomitant]
  7. PROBIOTICS [Concomitant]
     Active Substance: PROBIOTICS NOS
  8. AMLODIPINE [Concomitant]
     Active Substance: AMLODIPINE BESYLATE

REACTIONS (5)
  - Micturition urgency [None]
  - Feeling abnormal [None]
  - Dysuria [None]
  - Pollakiuria [None]
  - Impaired work ability [None]

NARRATIVE: CASE EVENT DATE: 20141115
